FAERS Safety Report 7438430-6 (Version None)
Quarter: 2011Q2

REPORT INFORMATION
  Report Type: 
  Country: None (occurrence: None)
  Receive Date: 20110426
  Receipt Date: 20110419
  Transmission Date: 20111010
  Serious: Yes (Other)
  Sender: FDA-Public Use
  Company Number: JP-B.I. PHARMACEUTICALS,INC./RIDGEFIELD-2011-BP-11251NB

PATIENT
  Age: 71 Year
  Sex: Female

DRUGS (2)
  1. MOBIC [Suspect]
     Route: 065
  2. MOBIC [Suspect]
     Dosage: 10DF
     Route: 065

REACTIONS (4)
  - GAIT DISTURBANCE [None]
  - SUICIDE ATTEMPT [None]
  - OVERDOSE [None]
  - DYSARTHRIA [None]
